FAERS Safety Report 14682943 (Version 1)
Quarter: 2018Q1

REPORT INFORMATION
  Report Type: Spontaneous
  Country: DE (occurrence: DE)
  Receive Date: 20180327
  Receipt Date: 20180327
  Transmission Date: 20180509
  Serious: Yes (Other)
  Sender: FDA-Public Use
  Company Number: DE-SUN PHARMACEUTICAL INDUSTRIES LTD-2017R1-138273

PATIENT
  Age: 65 Year
  Sex: Female
  Weight: 111 kg

DRUGS (1)
  1. LOVASTATIN. [Suspect]
     Active Substance: LOVASTATIN
     Indication: LOW DENSITY LIPOPROTEIN INCREASED
     Dosage: UNK
     Route: 048
     Dates: start: 201701, end: 201702

REACTIONS (2)
  - Myosclerosis [Unknown]
  - Myalgia [Unknown]

NARRATIVE: CASE EVENT DATE: 201701
